FAERS Safety Report 9221635 (Version 1)
Quarter: 2013Q2

REPORT INFORMATION
  Report Type: Spontaneous
  Country: GB (occurrence: GB)
  Receive Date: 20130410
  Receipt Date: 20130410
  Transmission Date: 20140414
  Serious: Yes (Other)
  Sender: FDA-Public Use
  Company Number: GB-JNJFOC-20130402791

PATIENT
  Age: 41 Year
  Sex: Female
  Weight: 61.68 kg

DRUGS (2)
  1. TOPAMAX [Suspect]
     Indication: EPILEPSY
     Route: 048
     Dates: start: 2008
  2. IBUPROFEN [Concomitant]
     Route: 065

REACTIONS (7)
  - Epilepsy [Recovered/Resolved]
  - Memory impairment [Recovered/Resolved]
  - Dissociation [Recovered/Resolved]
  - Somnolence [Recovered/Resolved]
  - Headache [Recovered/Resolved]
  - Abdominal discomfort [Recovered/Resolved]
  - Product quality issue [Unknown]
